FAERS Safety Report 9293753 (Version 1)
Quarter: 2013Q2

REPORT INFORMATION
  Report Type: Spontaneous
  Country: GB (occurrence: GB)
  Receive Date: 20130516
  Receipt Date: 20130516
  Transmission Date: 20140414
  Serious: Yes (Hospitalization)
  Sender: FDA-Public Use
  Company Number: CHNY2013GB001121

PATIENT
  Age: 84 Year
  Sex: Female

DRUGS (1)
  1. FERROUS SULFATE [Suspect]

REACTIONS (7)
  - Foreign body aspiration [Recovered/Resolved]
  - Mucosal inflammation [Recovered/Resolved]
  - Excessive granulation tissue [Recovered/Resolved]
  - Scab [Recovered/Resolved]
  - Mucosal discolouration [Recovered/Resolved]
  - Incorrect route of drug administration [Recovered/Resolved]
  - Accidental exposure to product [Recovered/Resolved]
